FAERS Safety Report 8533597-0 (Version None)
Quarter: 2012Q3

REPORT INFORMATION
  Report Type: 
  Country: None (occurrence: None)
  Receive Date: 20120724
  Receipt Date: 20120716
  Transmission Date: 20120928
  Serious: Yes (Other)
  Sender: FDA-Public Use
  Company Number: CA-JNJFOC-20120707879

PATIENT
  Sex: Male
  Weight: 56.7 kg

DRUGS (3)
  1. REMICADE [Suspect]
     Indication: CROHN'S DISEASE
     Route: 042
     Dates: start: 20120626
  2. REMICADE [Suspect]
     Route: 042
     Dates: start: 20120711
  3. IRON [Concomitant]
     Indication: MEDICAL DIET
     Route: 065

REACTIONS (3)
  - OEDEMA PERIPHERAL [None]
  - HYPERAESTHESIA [None]
  - SKIN DISCOLOURATION [None]
